FAERS Safety Report 17336062 (Version 2)
Quarter: 2020Q1

REPORT INFORMATION
  Report Type: Spontaneous
  Country: IT (occurrence: IT)
  Receive Date: 20200128
  Receipt Date: 20200310
  Transmission Date: 20200409
  Serious: Yes (Other)
  Sender: FDA-Public Use
  Company Number: IT-PFIZER INC-2020035756

PATIENT
  Sex: Female

DRUGS (5)
  1. IFOSFAMIDE. [Suspect]
     Active Substance: IFOSFAMIDE
     Indication: DIFFUSE LARGE B-CELL LYMPHOMA
     Dosage: 1400 MG, 1X/DAY
     Route: 042
     Dates: start: 20191126, end: 20191205
  2. VINCRISTINE SULFATE. [Suspect]
     Active Substance: VINCRISTINE SULFATE
     Indication: DIFFUSE LARGE B-CELL LYMPHOMA
     Dosage: 2 MG, TOTAL
     Dates: start: 20191126, end: 20191213
  3. ARACYTIN [Concomitant]
     Active Substance: CYTARABINE
     Dosage: 1800 MG, UNK
     Route: 042
     Dates: start: 20191129, end: 20191130
  4. METHOTREXATE SODIUM. [Suspect]
     Active Substance: METHOTREXATE SODIUM
     Indication: DIFFUSE LARGE B-CELL LYMPHOMA
     Dosage: 2650 MG, UNK
     Route: 042
     Dates: start: 20191126, end: 20191127
  5. ETOPOSIDE. [Concomitant]
     Active Substance: ETOPOSIDE
     Dosage: 140 MG, UNK
     Route: 042
     Dates: start: 20191129, end: 20191130

REACTIONS (1)
  - Neutropenia [Unknown]

NARRATIVE: CASE EVENT DATE: 20191206
